FAERS Safety Report 5481289-7 (Version None)
Quarter: 2007Q4

REPORT INFORMATION
  Report Type: 
  Country: None (occurrence: None)
  Receive Date: 20071005
  Receipt Date: 20071005
  Transmission Date: 20080405
  Serious: Yes (Life-Threatening)
  Sender: FDA-Public Use
  Company Number: None

PATIENT
  Sex: Female
  Weight: 38 kg

DRUGS (1)
  1. CHLORAL HYDRATE    500MG/5ML [Suspect]
     Indication: AGITATION
     Dosage: 1000MG  Q8HPRN   PO
     Route: 048
     Dates: start: 20071002, end: 20071003

REACTIONS (2)
  - HYPOTENSION [None]
  - NO THERAPEUTIC RESPONSE [None]
